FAERS Safety Report 5645323-3 (Version None)
Quarter: 2008Q1

REPORT INFORMATION
  Report Type: 
  Country: None (occurrence: None)
  Receive Date: 20080229
  Receipt Date: 20080221
  Transmission Date: 20080703
  Serious: Yes (Other)
  Sender: FDA-Public Use
  Company Number: B0502157A

PATIENT
  Sex: Female

DRUGS (2)
  1. PAROXETINE [Suspect]
     Indication: DRUG USE FOR UNKNOWN INDICATION
     Dates: start: 20011128
  2. VENLAFAXINE HCL [Concomitant]
     Indication: DEPRESSION
     Dosage: 75MCG PER DAY
     Dates: start: 20020924, end: 20021008

REACTIONS (6)
  - CONDITION AGGRAVATED [None]
  - DRUG WITHDRAWAL SYNDROME [None]
  - INTENTIONAL SELF-INJURY [None]
  - IRRITABILITY [None]
  - LETHARGY [None]
  - MOOD ALTERED [None]
